FAERS Safety Report 26114799 (Version 2)
Quarter: 2025Q4

REPORT INFORMATION
  Report Type: Spontaneous
  Country: US (occurrence: US)
  Receive Date: 20251203
  Receipt Date: 20251223
  Transmission Date: 20260117
  Serious: No
  Sender: BAXTER
  Company Number: US-BAXTER-2025BAX024980

PATIENT
  Sex: Female
  Weight: 64 kg

DRUGS (1)
  1. HEPARIN SODIUM [Suspect]
     Active Substance: HEPARIN SODIUM
     Dosage: UNK
     Route: 042

REACTIONS (3)
  - Device alarm issue [Unknown]
  - Device occlusion [Unknown]
  - Therapeutic response decreased [Unknown]
